FAERS Safety Report 14174273 (Version 1)
Quarter: 2017Q4

REPORT INFORMATION
  Report Type: Spontaneous
  Country: US (occurrence: US)
  Receive Date: 20171109
  Receipt Date: 20171109
  Transmission Date: 20180321
  Serious: No
  Sender: FDA-Public Use
  Company Number: US-BAYER-2017-201798

PATIENT
  Age: 17 Year
  Sex: Male

DRUGS (2)
  1. SORAFENIB (RAF KINASE INHIBITOR) [Suspect]
     Active Substance: SORAFENIB
     Indication: METASTASES TO LUNG
  2. SORAFENIB (RAF KINASE INHIBITOR) [Suspect]
     Active Substance: SORAFENIB
     Indication: OSTEOSARCOMA METASTATIC

REACTIONS (4)
  - Drug administered to patient of inappropriate age [None]
  - Off label use [None]
  - Rash [None]
  - Product use in unapproved indication [None]
